FAERS Safety Report 6286570-X (Version None)
Quarter: 2009Q3

REPORT INFORMATION
  Report Type: 
  Country: None (occurrence: None)
  Receive Date: 20090728
  Receipt Date: 20090407
  Transmission Date: 20100115
  Serious: Yes (Other)
  Sender: FDA-Public Use
  Company Number: PHHY2009GR10533

PATIENT
  Sex: Male

DRUGS (7)
  1. CERTICAN [Suspect]
     Indication: TRANSPLANT
     Dosage: 1.5 MG
     Route: 048
     Dates: start: 20071111, end: 20080609
  2. CERTICAN [Suspect]
     Indication: IMMUNOSUPPRESSION
  3. NEORAL [Concomitant]
     Indication: TRANSPLANT
     Dosage: 50 MG
  4. MEDROL [Concomitant]
     Indication: IMMUNOSUPPRESSION
     Dosage: 6 MG
  5. ATACAND [Concomitant]
     Indication: HYPERTENSION
     Dosage: 8 MG
  6. MYCOPHENOLATE MOFETIL [Concomitant]
     Dosage: 1.5 MG
  7. FK 506 [Concomitant]
     Dosage: 6 MG

REACTIONS (1)
  - PROTEINURIA [None]
